FAERS Safety Report 6316196-0 (Version None)
Quarter: 2009Q3

REPORT INFORMATION
  Report Type: 
  Country: None (occurrence: None)
  Receive Date: 20090820
  Receipt Date: 20090810
  Transmission Date: 20100115
  Serious: Yes (Other)
  Sender: FDA-Public Use
  Company Number: US-PURDUE-DEU-2009-0005434

PATIENT
  Age: 21 Year
  Sex: Male

DRUGS (5)
  1. HYDROMORPHONE HCL [Suspect]
     Indication: PHANTOM PAIN
     Dosage: 80 MG, DAILY
  2. FENTANYL [Suspect]
     Indication: PHANTOM PAIN
     Dosage: UNK
     Route: 042
  3. NORTRIPTYLINE HCL [Suspect]
     Indication: PHANTOM PAIN
     Dosage: 100 MG, SEE TEXT
     Route: 065
  4. METHADONE [Suspect]
     Indication: PHANTOM PAIN
     Dosage: 5 MG, TID
     Route: 065
  5. GABAPENTIN [Suspect]
     Indication: PHANTOM PAIN
     Dosage: 600 MG, TID
     Route: 065

REACTIONS (1)
  - PHANTOM PAIN [None]
